APPROVED DRUG PRODUCT: EVEX
Active Ingredient: ESTROGENS, ESTERIFIED
Strength: 1.25MG
Dosage Form/Route: TABLET;ORAL
Application: A083376 | Product #002
Applicant: ROCHE PALO ALTO LLC
Approved: Approved Prior to Jan 1, 1982 | RLD: No | RS: No | Type: DISCN